FAERS Safety Report 10624699 (Version 2)
Quarter: 2014Q4

REPORT INFORMATION
  Report Type: Report from Study
  Country: NL (occurrence: NL)
  Receive Date: 20141204
  Receipt Date: 20141204
  Transmission Date: 20150529
  Serious: Yes (Hospitalization, Other)
  Sender: FDA-Public Use
  Company Number: NL-AMGEN-NLDSL2013094700

PATIENT
  Age: 46 Year
  Sex: Female

DRUGS (2)
  1. XGEVA [Suspect]
     Active Substance: DENOSUMAB
     Indication: PRODUCT USED FOR UNKNOWN INDICATION
     Dosage: 1.7 ML (70MG/ML), Q4WK
     Route: 065
  2. NEULASTA [Suspect]
     Active Substance: PEGFILGRASTIM
     Indication: PRODUCT USED FOR UNKNOWN INDICATION
     Dosage: 0.6 ML (10MG/ML), Q3WK
     Route: 065
     Dates: start: 20131024

REACTIONS (12)
  - Terminal state [Unknown]
  - Myalgia [Unknown]
  - Laboratory test abnormal [Unknown]
  - Malaise [Unknown]
  - Ascites [Unknown]
  - Metastases to liver [Unknown]
  - Depressed mood [Unknown]
  - Fatigue [Unknown]
  - Pain in extremity [Unknown]
  - Asthenia [Unknown]
  - Cough [Unknown]
  - Bone pain [Unknown]
